FAERS Safety Report 24768144 (Version 1)
Quarter: 2024Q4

REPORT INFORMATION
  Report Type: Other
  Country: IT (occurrence: IT)
  Receive Date: 20241223
  Receipt Date: 20241223
  Transmission Date: 20250115
  Serious: Yes (Hospitalization, Other)
  Sender: B BRAUN
  Company Number: IT-B.Braun Medical Inc.-2167662

PATIENT
  Age: 49 Year
  Sex: Female

DRUGS (3)
  1. LEVETIRACETAM [Suspect]
     Active Substance: LEVETIRACETAM
     Indication: Seizure
  2. BRIVARACETAM [Suspect]
     Active Substance: BRIVARACETAM
  3. PERAMPANEL [Suspect]
     Active Substance: PERAMPANEL

REACTIONS (2)
  - Suicidal ideation [Unknown]
  - Drug ineffective [Unknown]
